FAERS Safety Report 22727947 (Version 3)
Quarter: 2023Q4

REPORT INFORMATION
  Report Type: Spontaneous
  Country: US (occurrence: US)
  Receive Date: 20230720
  Receipt Date: 20231013
  Transmission Date: 20240109
  Serious: No
  Sender: FDA-Public Use
  Company Number: US-ABBVIE-5334631

PATIENT
  Sex: Male
  Weight: 117 kg

DRUGS (2)
  1. LUPRON [Suspect]
     Active Substance: LEUPROLIDE ACETATE
     Indication: Product used for unknown indication
     Route: 065
  2. XTANDI [Suspect]
     Active Substance: ENZALUTAMIDE
     Indication: Prostate cancer
     Dosage: 160 MG?FREQUENCY TEXT: ONCE DAILY
     Route: 048
     Dates: start: 2019

REACTIONS (2)
  - Hot flush [Unknown]
  - Alopecia [Unknown]
